FAERS Safety Report 9526411 (Version 3)
Quarter: 2013Q4

REPORT INFORMATION
  Report Type: Spontaneous
  Country: JP (occurrence: JP)
  Receive Date: 20130916
  Receipt Date: 20131025
  Transmission Date: 20140711
  Serious: Yes (Death, Hospitalization, Other)
  Sender: FDA-Public Use
  Company Number: JP-TAKEDA-TCI2013A04604

PATIENT
  Age: 74 Year
  Sex: Male
  Weight: 52 kg

DRUGS (33)
  1. ADALAT CR [Concomitant]
     Route: 048
  2. ZYLORIC [Concomitant]
     Route: 048
  3. ZYLORIC [Concomitant]
     Route: 048
  4. DEPAS [Concomitant]
     Route: 048
  5. DEPAS [Concomitant]
     Route: 048
  6. ALIMAN [Concomitant]
     Route: 048
  7. ALIMAN [Concomitant]
     Route: 048
  8. ALLELOCK OD [Concomitant]
     Route: 048
  9. ALLELOCK OD [Concomitant]
     Route: 048
  10. HYTHIOL [Concomitant]
     Route: 048
  11. HYTHIOL [Concomitant]
     Route: 048
  12. TAMSULOSIN HYDROCHLORIDE OD [Concomitant]
     Route: 048
  13. TAMSULOSIN HYDROCHLORIDE OD [Concomitant]
     Route: 048
  14. EVIPROSTAT DB [Concomitant]
     Route: 048
  15. EVIPROSTAT DB [Concomitant]
     Route: 048
  16. DETOMEFAN [Concomitant]
     Route: 048
  17. DETOMEFAN [Concomitant]
     Route: 048
  18. ANTEBATE CREAM [Concomitant]
     Route: 062
  19. ANTEBATE CREAM [Concomitant]
     Route: 062
  20. PASTARON CREAM [Concomitant]
     Route: 062
  21. PASTARON CREAM [Concomitant]
     Route: 062
  22. SPIRAZON CREAM [Concomitant]
     Route: 062
  23. SPIRAZON CREAM [Concomitant]
     Route: 062
  24. LANSAP 800 [Suspect]
     Indication: HELICOBACTER INFECTION
     Dosage: 0.5 DF, BID
     Route: 048
     Dates: start: 20130717, end: 20130719
  25. LANSAP 800 [Suspect]
     Indication: HELICOBACTER INFECTION
  26. HOCHUUEKKITOU [Concomitant]
     Indication: DECREASED APPETITE
     Route: 048
     Dates: start: 20130716, end: 20130719
  27. HOCHUUEKKITOU [Concomitant]
     Indication: DECREASED APPETITE
  28. HOCHUUEKKITOU [Concomitant]
     Indication: MALAISE
  29. OLMETEC [Concomitant]
     Route: 048
  30. OLMETEC [Concomitant]
     Route: 048
  31. MAINTATE [Concomitant]
     Route: 048
  32. MAINTATE [Concomitant]
     Route: 048
  33. ADALAT CR [Concomitant]
     Route: 048

REACTIONS (8)
  - Interstitial lung disease [Fatal]
  - Asthenia [Fatal]
  - Dyspnoea [Fatal]
  - Dizziness [Fatal]
  - Pyrexia [Fatal]
  - Oedema [Fatal]
  - Renal disorder [Unknown]
  - Haemorrhage subcutaneous [Unknown]
